FAERS Safety Report 18685604 (Version 1)
Quarter: 2020Q4

REPORT INFORMATION
  Report Type: Spontaneous
  Country: GB (occurrence: GB)
  Receive Date: 20201230
  Receipt Date: 20201230
  Transmission Date: 20210114
  Serious: Yes (Other)
  Sender: FDA-Public Use
  Company Number: GB-ANIPHARMA-2020-UK-000298

PATIENT
  Age: 28 Year
  Sex: Female
  Weight: 73 kg

DRUGS (9)
  1. CERELLE [Concomitant]
     Active Substance: DESOGESTREL
     Dosage: UNKNOWN DOSE EVERY DAY
     Route: 065
     Dates: start: 20191212
  2. DUAC [Concomitant]
     Active Substance: BENZOYL PEROXIDE\CLINDAMYCIN PHOSPHATE
     Dosage: UNKNOWN DOSE EVERY DAY
     Route: 065
     Dates: start: 20201112
  3. FOLIC ACID. [Suspect]
     Active Substance: FOLIC ACID
     Dosage: UNKNOWN DOSE EVERY DAY
     Route: 065
     Dates: start: 20191212
  4. TRANEXAMIC ACID. [Concomitant]
     Active Substance: TRANEXAMIC ACID
     Dosage: UNKNOWN DOSE EVERY DAY
     Route: 065
     Dates: start: 20170125
  5. CANDESARTAN CILEXETIL. [Suspect]
     Active Substance: CANDESARTAN CILEXETIL
     Indication: PRODUCT USED FOR UNKNOWN INDICATION
     Dosage: 1 DF DAILY
     Route: 048
     Dates: start: 20200916
  6. HYDROXOCOBALAMIN [Concomitant]
     Active Substance: HYDROXOCOBALAMIN
     Dosage: UNKNOWN DOSE ONCE A WEEK
     Route: 030
     Dates: start: 20201023, end: 20201024
  7. LEVETIRACETAM. [Concomitant]
     Active Substance: LEVETIRACETAM
     Dosage: 3000 MG QD
     Route: 065
     Dates: start: 20191114
  8. RIZATRIPTAN. [Concomitant]
     Active Substance: RIZATRIPTAN
     Dosage: UNKNOWN DOSE AND FREQUENCY
     Route: 065
     Dates: start: 20200814
  9. VENTOLIN [Concomitant]
     Active Substance: ALBUTEROL SULFATE
     Dosage: UNKNOWN DOSE AND FREQUENCY
     Route: 055
     Dates: start: 20161216

REACTIONS (1)
  - Tremor [Unknown]

NARRATIVE: CASE EVENT DATE: 20201120
